FAERS Safety Report 6148090-2 (Version None)
Quarter: 2009Q2

REPORT INFORMATION
  Report Type: 
  Country: None (occurrence: None)
  Receive Date: 20090408
  Receipt Date: 20090401
  Transmission Date: 20091009
  Serious: Yes (Hospitalization)
  Sender: FDA-Public Use
  Company Number: B0569101A

PATIENT
  Sex: Female

DRUGS (3)
  1. LEUKERAN [Suspect]
     Indication: NEOPLASM MALIGNANT
     Dosage: 20MG PER DAY
     Route: 048
     Dates: start: 20090108, end: 20090112
  2. UNSPECIFIED MEDICATION [Concomitant]
  3. MABTHERA [Concomitant]
     Indication: LYMPHOMA

REACTIONS (3)
  - DYSARTHRIA [None]
  - MUSCULAR WEAKNESS [None]
  - TREMOR [None]
